FAERS Safety Report 16151577 (Version 2)
Quarter: 2019Q2

REPORT INFORMATION
  Report Type: Spontaneous
  Country: JP (occurrence: JP)
  Receive Date: 20190403
  Receipt Date: 20190410
  Transmission Date: 20190711
  Serious: Yes (Life-Threatening, Hospitalization, Other)
  Sender: FDA-Public Use
  Company Number: JP-JNJFOC-20190343210

PATIENT
  Age: 66 Year
  Sex: Female

DRUGS (14)
  1. DEXAMETHASONE. [Suspect]
     Active Substance: DEXAMETHASONE
     Indication: PLASMA CELL MYELOMA
     Dosage: [LEN/ DEX THERAPY - LENALIDOMIDE 4 MG ON DAYS 1-21, DEX 40 MG ON DAYS 1, 8, 15, AND 22 OF EACH 28
     Route: 065
  2. DOXORUBICIN HYDROCHLORIDE. [Suspect]
     Active Substance: DOXORUBICIN HYDROCHLORIDE
     Indication: PLASMA CELL MYELOMA
     Dosage: SALVAGE VCAP THERAPY (VINCRISTINE 1 MG/BODY ON DAY 1, CYCLOPHOSPHAMIDE 100 MG/BODY ON DAYS 1-4, D
     Route: 065
  3. DOXORUBICIN HYDROCHLORIDE. [Suspect]
     Active Substance: DOXORUBICIN HYDROCHLORIDE
     Indication: PLASMA CELL MYELOMA
     Dosage: SALVAGE VCAP THERAPY (VINCRISTINE 1 MG/BODY ON DAY 1, CYCLOPHOSPHAMIDE 100 MG/BODY ON DAYS 1-4, D
     Route: 065
  4. CYCLOPHOSPHAMIDE. [Suspect]
     Active Substance: CYCLOPHOSPHAMIDE
     Indication: PLASMA CELL MYELOMA
     Dosage: SALVAGE VCAP THERAPY (VINCRISTINE 1MG/BODY ON DAY 1, CYCLOPHOSPHAMIDE 100 MG/BODY ON DAYS 1-4
     Route: 065
  5. CYCLOPHOSPHAMIDE. [Suspect]
     Active Substance: CYCLOPHOSPHAMIDE
     Indication: PLASMA CELL MYELOMA
     Dosage: HIGH-DOSE CYCLOPHOSPHAMIDE
     Route: 065
  6. DEXAMETHASONE. [Suspect]
     Active Substance: DEXAMETHASONE
     Indication: PLASMA CELL MYELOMA
     Dosage: [CBD THERAPY - ON DAYS 1, 8, 15, AND 22 OF EACH 28-DAY CYCLE]; CYCLICAL
     Route: 065
  7. DEXAMETHASONE. [Suspect]
     Active Substance: DEXAMETHASONE
     Indication: PLASMA CELL MYELOMA
     Dosage: POM/DEX THERAPY (POMALIDOMIDE 4MG ON DAYS 1-21, DEX 20 MG ON DAYS 1, 8,15, AND 22); CYCLICAL
     Route: 065
  8. BORTEZOMIB. [Suspect]
     Active Substance: BORTEZOMIB
     Indication: PLASMA CELL MYELOMA
     Route: 065
  9. CYCLOPHOSPHAMIDE. [Suspect]
     Active Substance: CYCLOPHOSPHAMIDE
     Indication: PLASMA CELL MYELOMA
     Dosage: 400 MG/BODY [CBD THERAPY - ON DAYS 1, 8, 15, AND 22 OF EACH 28-DAY CYCLE]; CYCLICAL
     Route: 065
  10. LENALIDOMIDE [Suspect]
     Active Substance: LENALIDOMIDE
     Indication: PLASMA CELL MYELOMA
     Dosage: [LEN/ DEX THERAPY - LENALIDOMIDE 4 MG ON DAYS 1-21, DEX 40 MG ON DAYS 1, 8, 15, AND 22 OF EACH 28
     Route: 065
  11. PREDNISOLONE. [Suspect]
     Active Substance: PREDNISOLONE
     Indication: PLASMA CELL MYELOMA
     Route: 065
  12. POMALIDOMIDE [Suspect]
     Active Substance: POMALIDOMIDE
     Indication: PLASMA CELL MYELOMA
     Dosage: POM/DEX THERAPY (POMALIDOMIDE 4MG ON DAYS 1-21, DEX 20 MG ON DAYS 1, 8,15, AND 22); CYCLICAL
     Route: 065
  13. VINCRISTINE [Suspect]
     Active Substance: VINCRISTINE
     Indication: PLASMA CELL MYELOMA
     Dosage: SALVAGE VCAP THERAPY (VINCRISTINE 1 MG/BODY ON DAY 1, CYCLOPHOSPHAMIDE 100 MG/BODY ON DAYS 1-4,
     Route: 065
  14. MELPHALAN. [Suspect]
     Active Substance: MELPHALAN
     Indication: PLASMA CELL MYELOMA
     Dosage: HIGH-DOSE MELPHALAN
     Route: 065

REACTIONS (8)
  - Hepatic function abnormal [Recovered/Resolved]
  - Cytomegalovirus infection [Recovered/Resolved]
  - Urethritis [Recovered/Resolved]
  - Pathogen resistance [Recovered/Resolved]
  - Urinary tract infection [Recovered/Resolved]
  - Escherichia infection [Recovered/Resolved]
  - Adenoviral haemorrhagic cystitis [Recovered/Resolved]
  - Peritonitis viral [Recovered/Resolved]
